FAERS Safety Report 7345267-5 (Version None)
Quarter: 2011Q1

REPORT INFORMATION
  Report Type: 
  Country: None (occurrence: None)
  Receive Date: 20110310
  Receipt Date: 20110302
  Transmission Date: 20110831
  Serious: Yes (Death, Hospitalization, Other)
  Sender: FDA-Public Use
  Company Number: FR-ELI_LILLY_AND_COMPANY-FR201102006640

PATIENT
  Sex: Male

DRUGS (21)
  1. DIFFU K [Concomitant]
     Dosage: UNK, UNKNOWN
     Route: 048
     Dates: end: 20100510
  2. SEROPLEX [Concomitant]
     Dosage: UNK, UNKNOWN
     Route: 048
     Dates: start: 20100521
  3. TAMSULOSIN [Concomitant]
     Dosage: UNK, UNKNOWN
     Route: 048
     Dates: start: 20100521
  4. TEMESTA [Concomitant]
     Dosage: UNK, UNKNOWN
     Route: 048
     Dates: end: 20100510
  5. OGASTRO [Concomitant]
     Dosage: UNK, UNKNOWN
     Route: 048
     Dates: end: 20100510
  6. FUROSEMIDE [Concomitant]
     Dosage: UNK, UNKNOWN
     Route: 048
     Dates: start: 20100521
  7. SEROPLEX [Concomitant]
     Dosage: UNK, UNKNOWN
     Route: 048
     Dates: end: 20100510
  8. CYMBALTA [Suspect]
     Indication: DEPRESSION
     Dosage: 60 MG, DAILY (1/D)
     Route: 048
     Dates: start: 20100421, end: 20100510
  9. ANAFRANIL [Concomitant]
     Dosage: UNK, UNKNOWN
     Route: 048
  10. DIAMICRON [Concomitant]
     Dosage: UNK, UNKNOWN
     Route: 048
     Dates: end: 20100510
  11. DIFFU K [Concomitant]
     Dosage: UNK, UNKNOWN
     Route: 047
     Dates: start: 20100521
  12. DIAMICRON [Concomitant]
     Dosage: UNK, UNKNOWN
     Route: 048
     Dates: start: 20100521
  13. TEMESTA [Concomitant]
     Dosage: UNK, UNKNOWN
     Route: 048
     Dates: start: 20100521
  14. KARDEGIC [Concomitant]
     Dosage: UNK, UNKNOWN
     Route: 048
     Dates: end: 20100510
  15. OGASTRO [Concomitant]
     Dosage: UNK, UNKNOWN
     Route: 048
     Dates: start: 20100521
  16. FUROSEMIDE [Concomitant]
     Dosage: UNK, UNKNOWN
     Route: 048
     Dates: end: 20100510
  17. ATARAX [Concomitant]
     Dosage: UNK, UNK
     Dates: start: 20100521
  18. TAMSULOSIN [Concomitant]
     Dosage: UNK, UNKNOWN
     Route: 048
     Dates: end: 20100510
  19. ATARAX [Concomitant]
     Dosage: UNK, UNKNOWN
     Route: 048
  20. ANAFRANIL [Concomitant]
     Dosage: UNK, UNKNOWN
     Route: 048
     Dates: start: 20100521
  21. KARDEGIC [Concomitant]
     Dosage: UNK, UNKNOWN
     Dates: start: 20100521

REACTIONS (8)
  - CEREBRAL ATROPHY [None]
  - SUBDURAL HAEMATOMA [None]
  - SIGMOIDITIS [None]
  - HEPATITIS FULMINANT [None]
  - ABDOMINAL PAIN [None]
  - CARDIAC DISORDER [None]
  - PLEURAL EFFUSION [None]
  - CEREBELLAR ATROPHY [None]
